FAERS Safety Report 6643813-8 (Version None)
Quarter: 2010Q1

REPORT INFORMATION
  Report Type: 
  Country: None (occurrence: None)
  Receive Date: 20100322
  Receipt Date: 20100318
  Transmission Date: 20100710
  Serious: Yes (Hospitalization)
  Sender: FDA-Public Use
  Company Number: TR-JNJFOC-20100302600

PATIENT
  Age: 69 Year
  Sex: Male

DRUGS (9)
  1. DURAGESIC-100 [Suspect]
     Indication: PAIN
     Dosage: 75-100 UG/HR
     Route: 062
  2. DURAGESIC-100 [Suspect]
     Route: 062
  3. DURAGESIC-100 [Suspect]
     Route: 062
  4. NEXAVAR [Suspect]
     Indication: HEPATIC NEOPLASM MALIGNANT
     Route: 065
  5. PROTON PUMP INHIBITOR [Concomitant]
     Route: 065
  6. ANTACID TAB [Concomitant]
     Route: 065
  7. OLANZAPINE [Concomitant]
     Route: 065
  8. DOMPERIDONE [Concomitant]
     Route: 065
  9. TRAMADOL HCL [Concomitant]
     Route: 065

REACTIONS (3)
  - CONSTIPATION [None]
  - HEPATIC ENCEPHALOPATHY [None]
  - PALMAR-PLANTAR ERYTHRODYSAESTHESIA SYNDROME [None]
